FAERS Safety Report 7254175-X (Version None)
Quarter: 2011Q1

REPORT INFORMATION
  Report Type: 
  Country: None (occurrence: None)
  Receive Date: 20110129
  Receipt Date: 20100210
  Transmission Date: 20110831
  Serious: No
  Sender: FDA-Public Use
  Company Number: US-ABBOTT-10P-163-0626266-00

PATIENT
  Sex: Male
  Weight: 22.7 kg

DRUGS (6)
  1. TAMIFLU [Concomitant]
     Indication: ANTIVIRAL PROPHYLAXIS
     Dates: start: 20091201, end: 20091201
  2. HUMIRA [Suspect]
     Indication: JUVENILE ARTHRITIS
     Route: 058
     Dates: start: 20080901, end: 20100101
  3. FOLIC ACID [Concomitant]
     Indication: PRODUCT USED FOR UNKNOWN INDICATION
  4. RANITIDINE [Concomitant]
     Indication: PROPHYLAXIS AGAINST GASTROINTESTINAL ULCER
  5. HUMIRA [Suspect]
     Route: 058
     Dates: start: 20100101
  6. METHOTREXATE [Concomitant]
     Indication: PRODUCT USED FOR UNKNOWN INDICATION

REACTIONS (1)
  - INJECTION SITE PAIN [None]
